FAERS Safety Report 16106726 (Version 1)
Quarter: 2019Q1

REPORT INFORMATION
  Report Type: Spontaneous
  Country: US (occurrence: US)
  Receive Date: 20190322
  Receipt Date: 20190322
  Transmission Date: 20190418
  Serious: No
  Sender: FDA-Public Use
  Company Number: US-BAYER-2019-052665

PATIENT
  Sex: Female
  Weight: 43.99 kg

DRUGS (5)
  1. REMODULIN [Suspect]
     Active Substance: TREPROSTINIL
     Indication: PULMONARY ARTERIAL HYPERTENSION
     Dosage: 10 MG/ML
     Route: 058
     Dates: start: 20040122
  2. LETAIRIS [Concomitant]
     Active Substance: AMBRISENTAN
     Dosage: UNK
  3. REVATIO [Concomitant]
     Active Substance: SILDENAFIL CITRATE
     Dosage: UNK
  4. ADEMPAS [Suspect]
     Active Substance: RIOCIGUAT
     Dosage: UNK
  5. COUMADIN [Concomitant]
     Active Substance: WARFARIN SODIUM
     Dosage: UNK

REACTIONS (3)
  - Arthralgia [None]
  - Drug intolerance [None]
  - Nasal congestion [None]

NARRATIVE: CASE EVENT DATE: 2019
